FAERS Safety Report 9757857 (Version 3)
Quarter: 2014Q1

REPORT INFORMATION
  Report Type: Spontaneous
  Country: GB (occurrence: GB)
  Receive Date: 20131216
  Receipt Date: 20140129
  Transmission Date: 20141002
  Serious: Yes (Death, Hospitalization, Other)
  Sender: FDA-Public Use
  Company Number: GB-AMGEN-GBRSP2013072343

PATIENT
  Age: 66 Year
  Sex: Female
  Weight: 75 kg

DRUGS (23)
  1. ENBREL [Suspect]
     Indication: RHEUMATOID ARTHRITIS
     Dosage: 50 MG, WEEKLY
     Route: 058
     Dates: start: 20120229
  2. LEVOTHYROXINE SODIUM [Concomitant]
     Dosage: 100 UG, 1X/DAY
     Dates: start: 19960617
  3. LEVOTHYROXINE SODIUM [Concomitant]
     Dosage: 25 UG 1 TIMES DAILY AND 50 UG 1 TIMES DAILY
     Dates: start: 20110622
  4. LERCANIDIPINE HYDROCHLORIDE [Concomitant]
     Dosage: 10 MG, 1X/DAY
     Dates: start: 20111223
  5. LERCANIDIPINE HYDROCHLORIDE [Concomitant]
     Dosage: 20 MG, 1X/DAY
     Dates: start: 20121126
  6. PIROXICAM [Concomitant]
     Dosage: 112 G, 2X/DAY
     Dates: start: 20121126
  7. ATORVASTATIN CALCIUM [Concomitant]
     Dosage: 80 MG, 1X/DAY
     Dates: start: 20020730
  8. METHOTREXATE [Concomitant]
     Indication: RHEUMATOID ARTHRITIS
     Dosage: 10 MG, WEEKLY
     Dates: start: 20100414
  9. LANSOPRAZOLE [Concomitant]
     Dosage: 30 MG, 1X/DAY
     Dates: start: 20110929
  10. CLOPIDOGREL [Concomitant]
     Dosage: 75 MG, 1X/DAY
     Dates: start: 20130612
  11. CYCLIZINE [Concomitant]
     Dosage: 50 MG, 3X/DAY
     Dates: start: 20130612
  12. AMOXICILLIN [Concomitant]
     Dosage: 500 MG, 3X/DAY
     Dates: start: 20130404
  13. PREDNISOLONE [Concomitant]
     Dosage: 30 MG, 1X/DAY
     Dates: start: 20130404
  14. LACTULOSE [Concomitant]
     Dosage: 10 ML, 2 TIMES DAILY AS REQUIRED
     Dates: start: 20130612
  15. DOCUSATE SODIUM [Concomitant]
     Dosage: 100 MG, 2X/DAY
     Dates: start: 20130612
  16. BIOTENE                            /06680101/ [Concomitant]
     Dosage: 10 ML, 3X/DAY
     Dates: start: 20130612
  17. FOLIC ACID [Concomitant]
     Dosage: 5 MG, WEEKLY
     Dates: start: 20040121
  18. EZETIMIBE [Concomitant]
     Dosage: 10 MG, 1X/DAY
     Dates: start: 20071022
  19. TRANDOLAPRIL [Concomitant]
     Dosage: 4 MG, 1X/DAY
     Dates: start: 20071022
  20. CO-CODAMOL [Concomitant]
     Indication: RHEUMATOID ARTHRITIS
     Dosage: 1-2 TABLETS 4 TIMES DAILY,AS REQUIRED
     Dates: start: 20130709
  21. CO-CODAMOL [Concomitant]
     Indication: PAIN
  22. HYDROXOCOBALAMIN [Concomitant]
     Dosage: 5 AMP(S), EVERY 3 MONTHS
     Dates: start: 20040121
  23. TRAMADOL HYDROCHLORIDE [Concomitant]
     Indication: RHEUMATOID ARTHRITIS
     Dosage: 150 MG, 2X/DAY

REACTIONS (4)
  - Cerebrovascular accident [Fatal]
  - Small cell lung cancer metastatic [Fatal]
  - Metastases to liver [Fatal]
  - Lower respiratory tract infection [Fatal]
